FAERS Safety Report 4387543-4 (Version None)
Quarter: 2004Q2

REPORT INFORMATION
  Report Type: 
  Country: None (occurrence: None)
  Receive Date: 20040630
  Receipt Date: 20040504
  Transmission Date: 20050107
  Serious: Yes (Other)
  Sender: FDA-Public Use
  Company Number: US-GLAXOSMITHKLINE-A0509797A

PATIENT

DRUGS (3)
  1. ADVAIR HFA [Suspect]
     Route: 055
  2. CORTICOSTEROID [Concomitant]
     Route: 055
  3. STEROID NASAL SPRAY [Concomitant]
     Route: 045

REACTIONS (1)
  - ADRENAL SUPPRESSION [None]
